FAERS Safety Report 9814845 (Version 4)
Quarter: 2015Q2

REPORT INFORMATION
  Report Type: Spontaneous
  Country: US (occurrence: US)
  Receive Date: 20140113
  Receipt Date: 20150519
  Transmission Date: 20150821
  Serious: Yes (Other)
  Sender: FDA-Public Use
  Company Number: US-GLAXOSMITHKLINE-A1056261A

PATIENT
  Sex: Male

DRUGS (2)
  1. VENTOLIN [Suspect]
     Active Substance: ALBUTEROL SULFATE
     Indication: PRODUCT USED FOR UNKNOWN INDICATION
     Dosage: 90 MCG AT UNKNOWN DOSING
     Route: 055
     Dates: start: 20120518
  2. ADVAIR HFA [Suspect]
     Active Substance: FLUTICASONE PROPIONATE\SALMETEROL XINAFOATE
     Indication: EMPHYSEMA
     Dosage: 250/50 MCG AT UNKNOWN DOSING
     Route: 055
     Dates: start: 20120518

REACTIONS (7)
  - Chronic obstructive pulmonary disease [Not Recovered/Not Resolved]
  - Chemotherapy [Unknown]
  - Dyspnoea [Unknown]
  - Neoplasm malignant [Not Recovered/Not Resolved]
  - Ill-defined disorder [Unknown]
  - Oropharyngeal pain [Unknown]
  - Inhalation therapy [Unknown]
